FAERS Safety Report 12880642 (Version 1)
Quarter: 2016Q4

REPORT INFORMATION
  Report Type: Spontaneous
  Country: FR (occurrence: FR)
  Receive Date: 20161025
  Receipt Date: 20161025
  Transmission Date: 20170207
  Serious: Yes (Hospitalization, Other)
  Sender: FDA-Public Use
  Company Number: FR-GLAXOSMITHKLINE-FR2016GSK155635

PATIENT
  Age: 74 Year
  Sex: Male

DRUGS (10)
  1. ALDACTAZINE [Suspect]
     Active Substance: ALTHIAZIDE\SPIRONOLACTONE
     Indication: HYPERTENSION
     Dosage: UNK
     Route: 048
     Dates: end: 20160827
  2. CRESTOR [Concomitant]
     Active Substance: ROSUVASTATIN CALCIUM
  3. RACECADOTRIL [Concomitant]
     Active Substance: RACECADOTRIL
  4. KARDEGIC [Concomitant]
     Active Substance: ASPIRIN LYSINE
  5. OLANZAPINE. [Concomitant]
     Active Substance: OLANZAPINE
  6. VOLTARENE [Suspect]
     Active Substance: DICLOFENAC SODIUM
     Indication: TENDON DISORDER
     Dosage: UNK
     Route: 048
     Dates: start: 20160821, end: 20160827
  7. APROVEL [Suspect]
     Active Substance: IRBESARTAN
     Indication: HYPERTENSION
     Dosage: 15 MG, QD
     Route: 048
     Dates: start: 20160827
  8. METFORMIN [Concomitant]
     Active Substance: METFORMIN HYDROCHLORIDE
  9. GLICLAZIDE [Concomitant]
     Active Substance: GLICLAZIDE
  10. DEPAKOTE [Concomitant]
     Active Substance: DIVALPROEX SODIUM

REACTIONS (2)
  - Acute kidney injury [Recovering/Resolving]
  - Hyperkalaemia [Recovered/Resolved]

NARRATIVE: CASE EVENT DATE: 20160827
